FAERS Safety Report 4696741-1 (Version None)
Quarter: 2005Q2

REPORT INFORMATION
  Report Type: 
  Country: None (occurrence: None)
  Receive Date: 20050622
  Receipt Date: 20050519
  Transmission Date: 20051028
  Serious: Yes (Hospitalization)
  Sender: FDA-Public Use
  Company Number: US-SOLVAY-00205001971

PATIENT
  Age: 5404 Day
  Sex: Male
  Weight: 60 kg

DRUGS (1)
  1. ANDROGEL [Suspect]
     Indication: DELAYED PUBERTY
     Dosage: DAILY DOSE: .5 GRAM(S)
     Route: 062
     Dates: start: 20041201, end: 20050607

REACTIONS (5)
  - ADJUSTMENT DISORDER [None]
  - AGITATION [None]
  - ANOREXIA [None]
  - DEPRESSION [None]
  - LEARNING DISORDER [None]
